FAERS Safety Report 5067227-X (Version None)
Quarter: 2006Q3

REPORT INFORMATION
  Report Type: 
  Country: None (occurrence: None)
  Receive Date: 20060726
  Receipt Date: 20060712
  Transmission Date: 20061208
  Serious: Yes (Death)
  Sender: FDA-Public Use
  Company Number: 2006JP000558

PATIENT
  Age: 38 Year
  Sex: Male
  Weight: 67 kg

DRUGS (19)
  1. TACROLIMUS INJECTION  (TACROLIMUS) INJECTION [Suspect]
     Indication: BONE MARROW TRANSPLANT
     Dosage: 4 MG, IV NOS
     Route: 042
     Dates: start: 20050101, end: 20050713
  2. TARGOCID [Suspect]
     Indication: STAPHYLOCOCCAL INFECTION
     Dosage: SEE IMAGE
     Route: 042
     Dates: start: 20050621, end: 20050621
  3. TARGOCID [Suspect]
     Indication: STAPHYLOCOCCAL INFECTION
     Dosage: SEE IMAGE
     Route: 042
     Dates: start: 20050622, end: 20050709
  4. TARGOCID [Suspect]
     Indication: STAPHYLOCOCCAL INFECTION
     Dosage: SEE IMAGE
     Route: 042
     Dates: start: 20050711, end: 20050711
  5. TARGOCID [Suspect]
     Indication: STAPHYLOCOCCAL INFECTION
     Dosage: SEE IMAGE
     Route: 042
     Dates: start: 20050713, end: 20050804
  6. PRODIF (FOSFLUCONAZOLE) INJECTION [Suspect]
     Dosage: 200 MG/D, IV NOS
     Route: 042
     Dates: start: 20050619, end: 20050704
  7. FUNGUARD (MICAFUNGIN) INJECTION [Concomitant]
  8. TAZOCIN (PIPERACILLIN SODIUM, TAZOBACTAM SODIUM) INJECTION [Concomitant]
  9. AMIKACIN SULFATE [Concomitant]
  10. MEROPEN (MEROPENEM) INJECTION [Concomitant]
  11. VANCOMYCIN (VANCOMYCIN HYDROCHLORIDE) INJECTION [Concomitant]
  12. BROACT (CEFPIROME SULFATE) INJECTION [Concomitant]
  13. CIPROXAN-I.V. (CIPROFLOXACIN) INJECTION [Concomitant]
  14. OMEGACIN INJECTION [Concomitant]
  15. PREDNISOLONE [Concomitant]
  16. NEUTROGIN (LENOGRASTIM) INJECTION [Concomitant]
  17. ZOVIRAX [Concomitant]
  18. PRIMPERAN (METOCLOPRAMIDE HYDROCHLORIDE) INJECTION [Concomitant]
  19. HUMULIN R (INSULIN HUMAN) INJECTION [Concomitant]

REACTIONS (6)
  - CONDITION AGGRAVATED [None]
  - HEADACHE [None]
  - HYPERGLYCAEMIA [None]
  - NAUSEA [None]
  - PNEUMONIA [None]
  - RENAL IMPAIRMENT [None]
